FAERS Safety Report 15056476 (Version 1)
Quarter: 2018Q3

REPORT INFORMATION
  Report Type: Spontaneous
  Country: SA (occurrence: SA)
  Receive Date: 20180623
  Receipt Date: 20180623
  Transmission Date: 20181010
  Serious: Yes (Life-Threatening, Other)
  Sender: FDA-Public Use
  Company Number: SA-ACCORD-068517

PATIENT
  Age: 5 Year
  Sex: Female

DRUGS (2)
  1. OCTREOTIDE/OCTREOTIDE ACETATE [Suspect]
     Active Substance: OCTREOTIDE ACETATE
     Indication: RECTAL HAEMORRHAGE
  2. ESOMEPRAZOLE/ESOMEPRAZOLE MAGNESIUM/ESOMEPRAZOLE SODIUM [Suspect]
     Active Substance: ESOMEPRAZOLE
     Indication: RECTAL HAEMORRHAGE
     Route: 042

REACTIONS (1)
  - Drug ineffective [Unknown]
